FAERS Safety Report 24915330 (Version 2)
Quarter: 2025Q1

REPORT INFORMATION
  Report Type: Spontaneous
  Country: FR (occurrence: FR)
  Receive Date: 20250203
  Receipt Date: 20250326
  Transmission Date: 20250409
  Serious: Yes (Hospitalization, Other)
  Sender: AMGEN
  Company Number: FR-AMGEN-FRASP2025019048

PATIENT

DRUGS (2)
  1. ADALIMUMAB [Suspect]
     Active Substance: ADALIMUMAB
     Indication: Crohn^s disease
     Route: 065
  2. ADALIMUMAB [Suspect]
     Active Substance: ADALIMUMAB
     Indication: Colitis ulcerative

REACTIONS (7)
  - Unevaluable event [Unknown]
  - Anaphylactic reaction [Unknown]
  - Infection [Unknown]
  - Hypersensitivity [Unknown]
  - Gastrointestinal infection [Unknown]
  - Skin infection [Unknown]
  - Treatment failure [Unknown]
